FAERS Safety Report 24965956 (Version 2)
Quarter: 2025Q1

REPORT INFORMATION
  Report Type: Spontaneous
  Country: US (occurrence: US)
  Receive Date: 20250213
  Receipt Date: 20250227
  Transmission Date: 20250409
  Serious: Yes (Hospitalization)
  Sender: TEVA
  Company Number: US-TEVA-VS-3295114

PATIENT
  Age: 21 Year
  Sex: Female

DRUGS (5)
  1. ARIPIPRAZOLE [Suspect]
     Active Substance: ARIPIPRAZOLE
     Indication: Irritability
     Route: 065
     Dates: start: 20200709, end: 202007
  2. ARIPIPRAZOLE [Suspect]
     Active Substance: ARIPIPRAZOLE
     Indication: Irritability
     Route: 065
     Dates: start: 202007
  3. LORAZEPAM [Suspect]
     Active Substance: LORAZEPAM
     Indication: Neuroleptic malignant syndrome
     Route: 065
     Dates: start: 202008, end: 202009
  4. LORAZEPAM [Suspect]
     Active Substance: LORAZEPAM
     Indication: Neuroleptic malignant syndrome
     Route: 065
     Dates: start: 202009, end: 202107
  5. LORAZEPAM [Suspect]
     Active Substance: LORAZEPAM
     Indication: Neuroleptic malignant syndrome
     Route: 065
     Dates: start: 202007, end: 202008

REACTIONS (2)
  - Neuroleptic malignant syndrome [Recovered/Resolved]
  - Disinhibition [Unknown]

NARRATIVE: CASE EVENT DATE: 20200701
